FAERS Safety Report 16658508 (Version 3)
Quarter: 2019Q4

REPORT INFORMATION
  Report Type: Spontaneous
  Country: US (occurrence: US)
  Receive Date: 20190801
  Receipt Date: 20191010
  Transmission Date: 20200122
  Serious: Yes (Other)
  Sender: FDA-Public Use
  Company Number: US-PFIZER INC-2019328279

PATIENT
  Age: 48 Year
  Sex: Male
  Weight: 195 kg

DRUGS (3)
  1. ELIQUIS [Suspect]
     Active Substance: APIXABAN
     Indication: CEREBROVASCULAR ACCIDENT PROPHYLAXIS
     Dosage: 5 MILLIGRAM, BID
     Route: 048
     Dates: start: 20190326
  2. TIKOSYN [Suspect]
     Active Substance: DOFETILIDE
     Indication: ATRIAL FIBRILLATION
     Dosage: UNK
     Route: 065
  3. CLARITIN ALLERGIC [Concomitant]
     Dosage: UNK
     Route: 065

REACTIONS (4)
  - Muscular weakness [Unknown]
  - Arthropod bite [Unknown]
  - Cellulitis [Unknown]
  - Pain in extremity [Unknown]
